FAERS Safety Report 4707260-8 (Version None)
Quarter: 2005Q3

REPORT INFORMATION
  Report Type: 
  Country: None (occurrence: None)
  Receive Date: 20050701
  Receipt Date: 20050701
  Transmission Date: 20060218
  Serious: Yes (Hospitalization)
  Sender: FDA-Public Use
  Company Number: None

PATIENT
  Age: 63 Year
  Sex: Male
  Weight: 70.7 kg

DRUGS (1)
  1. AVASTIN [Suspect]
     Indication: COLON CANCER METASTATIC
     Dosage: 5MG/KG   EVERY 2 WEEKS   INTRAVENOU
     Route: 042
     Dates: start: 20050203, end: 20050519

REACTIONS (3)
  - EAR HAEMORRHAGE [None]
  - EPISTAXIS [None]
  - INJECTION SITE HAEMORRHAGE [None]
